FAERS Safety Report 23660506 (Version 2)
Quarter: 2024Q2

REPORT INFORMATION
  Report Type: Report from Study
  Country: US (occurrence: US)
  Receive Date: 20240322
  Receipt Date: 20240426
  Transmission Date: 20240716
  Serious: Yes (Other)
  Sender: FDA-Public Use
  Company Number: US-JNJFOC-20240342191

PATIENT
  Age: 84 Year
  Sex: Male

DRUGS (1)
  1. REMICADE [Suspect]
     Active Substance: INFLIXIMAB
     Indication: Crohn^s disease
     Route: 041

REACTIONS (7)
  - Prostate cancer [Unknown]
  - Atrial fibrillation [Unknown]
  - Cerebrovascular accident [Unknown]
  - Cholecystectomy [Unknown]
  - Hypoacusis [Unknown]
  - Visual impairment [Unknown]
  - Therapeutic product effect decreased [Unknown]

NARRATIVE: CASE EVENT DATE: 20160101
